FAERS Safety Report 19097289 (Version 2)
Quarter: 2021Q2

REPORT INFORMATION
  Report Type: Report from Study
  Country: US (occurrence: US)
  Receive Date: 20210406
  Receipt Date: 20210527
  Transmission Date: 20210717
  Serious: Yes (Other)
  Sender: FDA-Public Use
  Company Number: US-TAKEDA-2021TUS009835

PATIENT
  Age: 29 Year
  Sex: Female
  Weight: 63 kg

DRUGS (2)
  1. NORETHINDRONE [NORETHISTERONE] [Concomitant]
     Active Substance: NORETHINDRONE
     Indication: CONTRACEPTION
     Dosage: 0.35 MILLIGRAM
     Route: 048
     Dates: start: 2012
  2. LANADELUMAB [Suspect]
     Active Substance: LANADELUMAB
     Indication: HEREDITARY ANGIOEDEMA
     Dosage: 300 MILLIGRAM, Q2WEEKS
     Route: 065
     Dates: start: 201901

REACTIONS (2)
  - Basal cell carcinoma [Recovered/Resolved]
  - Hereditary angioedema [Recovered/Resolved]

NARRATIVE: CASE EVENT DATE: 20200113
